FAERS Safety Report 8954171 (Version 2)
Quarter: 2012Q4

REPORT INFORMATION
  Report Type: 
  Country: US (occurrence: US)
  Receive Date: 20121207
  Receipt Date: 20121220
  Transmission Date: 20130627
  Serious: Yes (Other)
  Sender: FDA-Public Use
  Company Number: US-WATSON-2012-20994

PATIENT
  Sex: Female
  Weight: 79 kg

DRUGS (1)
  1. NEXT CHOICE [Suspect]
     Indication: CONTRACEPTION
     Dosage: UNK
     Route: 048
     Dates: start: 200912, end: 201012

REACTIONS (2)
  - Ovarian failure [Not Recovered/Not Resolved]
  - Menstruation irregular [Not Recovered/Not Resolved]
